FAERS Safety Report 5809394-3 (Version None)
Quarter: 2008Q3

REPORT INFORMATION
  Report Type: 
  Country: None (occurrence: None)
  Receive Date: 20080714
  Receipt Date: 20080630
  Transmission Date: 20090109
  Serious: Yes (Hospitalization, Other)
  Sender: FDA-Public Use
  Company Number: US-CVT-080059

PATIENT

DRUGS (10)
  1. RANEXA [Suspect]
     Indication: ANGINA PECTORIS
     Dosage: 500 MG, BID
     Route: 048
     Dates: start: 20071201, end: 20080420
  2. SOTALOL                            /00371501/ [Suspect]
     Indication: ARRHYTHMIA
     Dosage: 80 MG, BID
     Dates: start: 20080418
  3. CIPROFLOXACIN                      /00697202/ [Suspect]
     Indication: INFECTION PROPHYLAXIS
     Dosage: 500 MG, BID
     Dates: start: 20080418
  4. ATENOLOL [Concomitant]
     Dosage: 75 MG, QD
  5. PROTONIX /01263202/ [Concomitant]
     Dosage: 40 MG, QD
  6. ACCUPRIL [Concomitant]
     Dosage: 40 MG, QD
  7. ASPIRIN [Concomitant]
     Dosage: 325 MG, QD
  8. NITROGLYCERIN [Concomitant]
     Dosage: 0.4 MG, PRN
     Route: 060
  9. PLAVIX [Concomitant]
     Dosage: 75 MG, QD
  10. NIACIN [Concomitant]
     Dosage: 500 MG, QD

REACTIONS (4)
  - ANGINA PECTORIS [None]
  - MYOCARDIAL INFARCTION [None]
  - TORSADE DE POINTES [None]
  - VENTRICULAR TACHYCARDIA [None]
